FAERS Safety Report 15567782 (Version 1)
Quarter: 2018Q4

REPORT INFORMATION
  Report Type: Spontaneous
  Country: US (occurrence: US)
  Receive Date: 20181030
  Receipt Date: 20181030
  Transmission Date: 20190205
  Serious: No
  Sender: FDA-Public Use
  Company Number: US-RISING PHARMACEUTICALS, INC.-2017RIS00386

PATIENT
  Sex: Female

DRUGS (1)
  1. CROMOLYN SODIUM. [Suspect]
     Active Substance: CROMOLYN SODIUM
     Dosage: UNK
     Dates: start: 2015

REACTIONS (4)
  - Asthenia [Unknown]
  - Inflammation [Unknown]
  - Fatigue [Unknown]
  - Gastrointestinal disorder [Unknown]
